FAERS Safety Report 19006665 (Version 1)
Quarter: 2021Q1

REPORT INFORMATION
  Report Type: Spontaneous
  Country: US (occurrence: US)
  Receive Date: 20210315
  Receipt Date: 20210315
  Transmission Date: 20210420
  Serious: Yes (Hospitalization)
  Sender: FDA-Public Use
  Company Number: US-ABBVIE-21K-163-3813144-00

PATIENT
  Age: 80 Year
  Sex: Female

DRUGS (2)
  1. IMBRUVICA [Suspect]
     Active Substance: IBRUTINIB
     Indication: CHRONIC LYMPHOCYTIC LEUKAEMIA
     Route: 048
     Dates: start: 201802, end: 20210226
  2. IMBRUVICA [Suspect]
     Active Substance: IBRUTINIB
     Dosage: TABLETS WERE CRUSHED AND MIXED WITH 30 ML OF WATER TO MAKE AN ORAL LIQUID AND ADMINISTERED
     Route: 048
     Dates: start: 20210227, end: 20210301

REACTIONS (2)
  - Diverticulitis [Unknown]
  - Small intestinal obstruction [Unknown]

NARRATIVE: CASE EVENT DATE: 20210227
